FAERS Safety Report 9808092 (Version 1)
Quarter: 2014Q1

REPORT INFORMATION
  Report Type: Spontaneous
  Country: US (occurrence: US)
  Receive Date: 20140110
  Receipt Date: 20140110
  Transmission Date: 20141002
  Serious: No
  Sender: FDA-Public Use
  Company Number: US-JNJFOC-20140103128

PATIENT
  Sex: Female
  Weight: 102.06 kg

DRUGS (2)
  1. INVEGA SUSTENNA [Suspect]
     Indication: SCHIZOPHRENIA
     Route: 030
  2. INVEGA SUSTENNA [Suspect]
     Indication: SCHIZOPHRENIA
     Route: 030

REACTIONS (5)
  - Chills [Unknown]
  - Pain in extremity [Unknown]
  - Neck pain [Unknown]
  - Muscle twitching [Recovered/Resolved]
  - Asthenia [Unknown]
